FAERS Safety Report 12759306 (Version 1)
Quarter: 2016Q3

REPORT INFORMATION
  Report Type: Spontaneous
  Country: US (occurrence: US)
  Receive Date: 20160919
  Receipt Date: 20160919
  Transmission Date: 20161109
  Serious: No
  Sender: FDA-Public Use
  Company Number: US-JUBILANT HOLLISTERSTIER LLC-1057442

PATIENT
  Sex: Male

DRUGS (20)
  1. LEVOCETIRIZINE DIHYDROCHLORIDE. [Concomitant]
     Active Substance: LEVOCETIRIZINE DIHYDROCHLORIDE
  2. POLLENS - TREES, TREE MIX 6 [Suspect]
     Active Substance: BETULA NIGRA POLLEN\BETULA PAPYRIFERA POLLEN\BETULA PENDULA POLLEN\FAGUS GRANDIFOLIA POLLEN\FRAXINUS AMERICANA POLLEN\JUGLANS NIGRA POLLEN\POPULUS DELTOIDES POLLEN\ULMUS AMERICANA POLLEN
     Dates: start: 20160112, end: 20160112
  3. STERILE DILUENT FOR ALLERGENIC EXTRACT (ALBUMIN (HUMAN)\PHENOL) [Suspect]
     Active Substance: ALBUMIN HUMAN\PHENOL
     Dates: start: 20160112, end: 20160112
  4. POLLENS - TREES, MULBERRY MIX [Suspect]
     Active Substance: MORUS ALBA POLLEN\MORUS RUBRA POLLEN
     Dates: start: 20160112, end: 20160112
  5. STANDARDIZED BERMUDA GRASS POLLEN [Suspect]
     Active Substance: CYNODON DACTYLON POLLEN
     Dates: start: 20160112, end: 20160112
  6. MONTELUKAST SODIUM. [Concomitant]
     Active Substance: MONTELUKAST SODIUM
  7. POLLENS - WEEDS, KOCHIA SCOPARIA [Suspect]
     Active Substance: BASSIA SCOPARIA POLLEN
     Dates: start: 20160112, end: 20160112
  8. MIXED RAGWEED [Suspect]
     Active Substance: AMBROSIA ARTEMISIIFOLIA POLLEN\AMBROSIA TRIFIDA POLLEN
     Dates: start: 20160112, end: 20160112
  9. RUSSIAN THISTLE POLLEN [Suspect]
     Active Substance: SALSOLA KALI POLLEN
     Dates: start: 20160112, end: 20160112
  10. MIXTURE OF STANDARDIZED MITES [Suspect]
     Active Substance: DERMATOPHAGOIDES FARINAE\DERMATOPHAGOIDES PTERONYSSINUS
     Dates: start: 20160112, end: 20160112
  11. BAHIA GRASS POLLEN [Suspect]
     Active Substance: PASPALUM NOTATUM POLLEN
     Dates: start: 20160112, end: 20160112
  12. POLLENS - GRASSES, JOHNSON GRASS SORGHUM HALEPENSE [Suspect]
     Active Substance: SORGHUM HALEPENSE POLLEN
     Indication: HYPERSENSITIVITY
     Dates: start: 20160112, end: 20160112
  13. ENGLISH PLANTAIN POLLEN [Suspect]
     Active Substance: PLANTAGO LANCEOLATA POLLEN
     Dates: start: 20160112, end: 20160112
  14. CLOTRIMAZOLE AND BETAMETHASONE DIPROPIONATE [Concomitant]
     Active Substance: BETAMETHASONE\BETAMETHASONE DIPROPIONATE\CLOTRIMAZOLE
  15. STANDARDIZED GRASS POLLEN, GRASS MIX 7 [Suspect]
     Active Substance: AGROSTIS GIGANTEA POLLEN\ANTHOXANTHUM ODORATUM POLLEN\DACTYLIS GLOMERATA POLLEN\FESTUCA PRATENSIS POLLEN\LOLIUM PERENNE POLLEN\PHLEUM PRATENSE POLLEN\POA PRATENSIS POLLEN
     Dates: start: 20160112, end: 20160112
  16. STANDARDIZED CAT PELT [Suspect]
     Active Substance: FELIS CATUS DANDER
     Dates: start: 20160112, end: 20160112
  17. POLLENS - TREES, TREE MIX 5 [Suspect]
     Active Substance: ACER NEGUNDO POLLEN\ACER RUBRUM POLLEN\ACER SACCHARUM POLLEN\CARYA ILLINOINENSIS POLLEN\PLATANUS OCCIDENTALIS POLLEN\QUERCUS ALBA POLLEN\QUERCUS RUBRA POLLEN\QUERCUS VIRGINIANA POLLEN\SALIX NIGRA POLLEN
     Dates: start: 20160112, end: 20160112
  18. DOCK/SORREL MIXTURE [Suspect]
     Active Substance: RUMEX ACETOSELLA POLLEN\RUMEX CRISPUS POLLEN
     Dates: start: 20160112, end: 20160112
  19. ROUGH REDROOT PIGWEED POLLEN [Suspect]
     Active Substance: AMARANTHUS RETROFLEXUS POLLEN
     Dates: start: 20160112, end: 20160112
  20. TRIAMCINOLONE ACETONIDE. [Concomitant]
     Active Substance: TRIAMCINOLONE ACETONIDE

REACTIONS (7)
  - Erythema [None]
  - Flushing [None]
  - Urticaria [None]
  - Throat irritation [None]
  - Dermatitis allergic [None]
  - Pruritus [None]
  - Cough [None]
